FAERS Safety Report 4499081-9 (Version None)
Quarter: 2004Q4

REPORT INFORMATION
  Report Type: 
  Country: None (occurrence: None)
  Receive Date: 20041111
  Receipt Date: 20041104
  Transmission Date: 20050328
  Serious: Yes (Other)
  Sender: FDA-Public Use
  Company Number: BR-JNJFOC-20041101771

PATIENT
  Age: 84 Year
  Sex: Female

DRUGS (2)
  1. RISPERDAL [Suspect]
     Route: 049
  2. REMINYL [Suspect]
     Route: 049

REACTIONS (3)
  - COAGULOPATHY [None]
  - PETECHIAE [None]
  - PLATELET COUNT DECREASED [None]
